FAERS Safety Report 9443582 (Version 4)
Quarter: 2014Q1

REPORT INFORMATION
  Report Type: Report from Study
  Country: DE (occurrence: DE)
  Receive Date: 20130806
  Receipt Date: 20140306
  Transmission Date: 20141002
  Serious: Yes (Death, Disabling, Other)
  Sender: FDA-Public Use
  Company Number: PHHY2013DE082988

PATIENT
  Sex: Male
  Weight: 73 kg

DRUGS (8)
  1. AMN107 [Suspect]
     Indication: CHRONIC MYELOID LEUKAEMIA
     Dosage: 800 MG, DAILY
     Route: 048
     Dates: start: 20120824
  2. AMN107 [Suspect]
     Dosage: 400 MG, PER DAY
     Route: 048
     Dates: start: 20121210
  3. ZOMETA [Suspect]
     Dates: start: 2008
  4. PREDNISOLONE [Concomitant]
     Dosage: 10 MG, DAILY
     Route: 048
     Dates: start: 20130110
  5. ZOLADEX [Concomitant]
     Dates: start: 20111219
  6. ZYTIGA [Concomitant]
     Dosage: 1000 MG, DAILY
     Route: 048
     Dates: start: 20130110
  7. CALCIMAGON [Concomitant]
     Dosage: 1000 MG, DAILY
     Route: 048
     Dates: start: 20110801
  8. IBUPROFEN [Concomitant]
     Dosage: 1800 MG, DAILY
     Route: 048
     Dates: start: 20130610

REACTIONS (6)
  - Prostate cancer metastatic [Fatal]
  - Blindness unilateral [Fatal]
  - Sepsis [Fatal]
  - Prostatic specific antigen increased [Fatal]
  - Metastases to meninges [Fatal]
  - Metastases to bone [Not Recovered/Not Resolved]
